FAERS Safety Report 24426884 (Version 4)
Quarter: 2025Q1

REPORT INFORMATION
  Report Type: Spontaneous
  Country: JP (occurrence: JP)
  Receive Date: 20241011
  Receipt Date: 20250116
  Transmission Date: 20250408
  Serious: Yes (Other)
  Sender: UCB
  Company Number: JP-UCBJ-CD202409396UCBPHAPROD

PATIENT
  Age: 52 Year
  Sex: Female

DRUGS (5)
  1. VIMPAT [Suspect]
     Active Substance: LACOSAMIDE
     Indication: Lennox-Gastaut syndrome
     Route: 048
  2. VIMPAT [Suspect]
     Active Substance: LACOSAMIDE
     Indication: Off label use
  3. DIAZEPAM [Concomitant]
     Active Substance: DIAZEPAM
     Indication: Lennox-Gastaut syndrome
  4. GABAPENTIN [Concomitant]
     Active Substance: GABAPENTIN
     Indication: Lennox-Gastaut syndrome
  5. CARBAMAZEPINE [Concomitant]
     Active Substance: CARBAMAZEPINE
     Indication: Lennox-Gastaut syndrome

REACTIONS (2)
  - Epilepsy [Unknown]
  - Off label use [Unknown]
